FAERS Safety Report 6610388-9 (Version None)
Quarter: 2010Q1

REPORT INFORMATION
  Report Type: 
  Country: None (occurrence: None)
  Receive Date: 20100302
  Receipt Date: 20100128
  Transmission Date: 20100710
  Serious: No
  Sender: FDA-Public Use
  Company Number: US-BAYER-201012981NA

PATIENT
  Age: 42 Year
  Sex: Female

DRUGS (1)
  1. ULTRAVIST (PHARMACY BULK) [Suspect]
     Indication: COMPUTERISED TOMOGRAM ABDOMEN
     Dosage: TOTAL DAILY DOSE: 96 ML  UNIT DOSE: 500 ML
     Route: 042
     Dates: start: 20100128, end: 20100128

REACTIONS (2)
  - NASAL CONGESTION [None]
  - SNEEZING [None]
